FAERS Safety Report 19058280 (Version 1)
Quarter: 2021Q1

REPORT INFORMATION
  Report Type: Spontaneous
  Country: US (occurrence: US)
  Receive Date: 20210324
  Receipt Date: 20210324
  Transmission Date: 20210420
  Serious: Yes (Other)
  Sender: FDA-Public Use
  Company Number: US-VALIDUS PHARMACEUTICALS LLC-US-2021VAL001056

PATIENT

DRUGS (1)
  1. ROCALTROL [Suspect]
     Active Substance: CALCITRIOL
     Indication: THYROIDECTOMY
     Dosage: UNK
     Route: 065

REACTIONS (1)
  - Hypocalcaemia [Unknown]
